FAERS Safety Report 9210749 (Version 1)
Quarter: 2013Q2

REPORT INFORMATION
  Report Type: Other
  Country: DK (occurrence: DK)
  Receive Date: 20130404
  Receipt Date: 20130404
  Transmission Date: 20140414
  Serious: Yes (Other)
  Sender: FDA-Public Use
  Company Number: DK-NICOBRDEVP-2013-05542

PATIENT
  Sex: Female

DRUGS (3)
  1. LEVETIRACETAM (UNKNOWN) [Suspect]
     Indication: EPILEPSY
     Dosage: DAILY DOSE : 2500
     Route: 065
  2. VALPROIC ACID [Concomitant]
     Indication: EPILEPSY
     Dosage: UNK
     Route: 065
  3. LAMOTRIGINE [Concomitant]
     Indication: EPILEPSY
     Dosage: UNK
     Route: 065

REACTIONS (3)
  - Stillbirth [Unknown]
  - Pregnancy [Recovered/Resolved]
  - Maternal exposure during pregnancy [Unknown]
